FAERS Safety Report 11416109 (Version 1)
Quarter: 2015Q3

REPORT INFORMATION
  Report Type: Spontaneous
  Country: US (occurrence: None)
  Receive Date: 20150824
  Receipt Date: 20150824
  Transmission Date: 20151125
  Serious: Yes (Other)
  Sender: FDA-Public Use
  Company Number: None

PATIENT
  Age: 48 Year
  Sex: Female
  Weight: 66.23 kg

DRUGS (2)
  1. DULOXETINE 60MG [Suspect]
     Active Substance: DULOXETINE
     Indication: DEPRESSION
     Dates: start: 20140101, end: 20140301
  2. DULOXETINE 60MG [Suspect]
     Active Substance: DULOXETINE
     Indication: PAIN
     Dates: start: 20140101, end: 20140301

REACTIONS (2)
  - Depression [None]
  - Pain [None]

NARRATIVE: CASE EVENT DATE: 20140301
